FAERS Safety Report 9373442 (Version 3)
Quarter: 2013Q3

REPORT INFORMATION
  Report Type: Spontaneous
  Country: FR (occurrence: FR)
  Receive Date: 20130627
  Receipt Date: 20130722
  Transmission Date: 20140515
  Serious: Yes (Other)
  Sender: FDA-Public Use
  Company Number: FR-TEVA-414981ISR

PATIENT
  Age: 29 Year
  Sex: Female
  Weight: 20 kg

DRUGS (3)
  1. OLANZAPINE TEVA [Suspect]
     Indication: DE LANGE^S SYNDROME
     Dosage: 5 MILLIGRAM DAILY;
     Dates: start: 2013
  2. OLANZAPINE TEVA [Suspect]
     Dosage: 10 MILLIGRAM DAILY;
     Dates: start: 201306
  3. DEROXAT [Concomitant]
     Indication: OBSESSIVE-COMPULSIVE DISORDER

REACTIONS (4)
  - Diabetes mellitus [Recovered/Resolved]
  - Platelet count decreased [Not Recovered/Not Resolved]
  - Off label use [Unknown]
  - Blood triglycerides increased [Not Recovered/Not Resolved]
